FAERS Safety Report 16660766 (Version 2)
Quarter: 2019Q3

REPORT INFORMATION
  Report Type: Spontaneous
  Country: JP (occurrence: JP)
  Receive Date: 20190802
  Receipt Date: 20190827
  Transmission Date: 20191004
  Serious: Yes (Hospitalization, Other)
  Sender: FDA-Public Use
  Company Number: JP-ASTRAZENECA-2019SF09545

PATIENT
  Age: 54 Year
  Sex: Male
  Weight: 65 kg

DRUGS (2)
  1. CRESTOR [Suspect]
     Active Substance: ROSUVASTATIN CALCIUM
     Indication: DYSLIPIDAEMIA
     Dosage: DOSE UNKNOWN
     Route: 048
     Dates: end: 20190704
  2. DELLEGRA [Suspect]
     Active Substance: FEXOFENADINE HYDROCHLORIDE\PSEUDOEPHEDRINE HYDROCHLORIDE
     Route: 065
     Dates: start: 2015

REACTIONS (2)
  - Renal tubular necrosis [Recovering/Resolving]
  - Nephrotic syndrome [Unknown]

NARRATIVE: CASE EVENT DATE: 20190628
